FAERS Safety Report 8893833 (Version 2)
Quarter: 2013Q1

REPORT INFORMATION
  Report Type: Spontaneous
  Country: US (occurrence: US)
  Receive Date: 20121108
  Receipt Date: 20130103
  Transmission Date: 20140127
  Serious: No
  Sender: FDA-Public Use
  Company Number: US-PFIZER INC-2012277456

PATIENT
  Age: 74 Year
  Sex: Male

DRUGS (1)
  1. INLYTA [Suspect]
     Indication: RENAL CANCER
     Dosage: 1 MG, UNK
     Dates: start: 20121030, end: 20121119

REACTIONS (4)
  - Speech disorder [Unknown]
  - Headache [Unknown]
  - Oropharyngeal pain [Unknown]
  - Drug intolerance [Unknown]
